FAERS Safety Report 7058476-X (Version None)
Quarter: 2010Q4

REPORT INFORMATION
  Report Type: 
  Country: None (occurrence: None)
  Receive Date: 20101022
  Receipt Date: 20101013
  Transmission Date: 20110411
  Serious: Yes (Other)
  Sender: FDA-Public Use
  Company Number: JP-US-EMD SERONO, INC.-7021989

PATIENT
  Age: 32 Year
  Sex: Female

DRUGS (1)
  1. CLOMIPHENE CITRATE [Suspect]
     Indication: OVULATION INDUCTION

REACTIONS (1)
  - ECTOPIC PREGNANCY [None]
